FAERS Safety Report 5328777-1 (Version None)
Quarter: 2007Q2

REPORT INFORMATION
  Report Type: 
  Country: None (occurrence: None)
  Receive Date: 20070516
  Receipt Date: 20070516
  Transmission Date: 20071010
  Serious: Yes (Hospitalization)
  Sender: FDA-Public Use
  Company Number: None

PATIENT
  Sex: Female
  Weight: 74.57 kg

DRUGS (1)
  1. TAXOL [Suspect]
     Dosage: 145 MG

REACTIONS (1)
  - PULMONARY EMBOLISM [None]
